FAERS Safety Report 24153280 (Version 1)
Quarter: 2024Q3

REPORT INFORMATION
  Report Type: Spontaneous
  Country: US (occurrence: None)
  Receive Date: 20240730
  Receipt Date: 20240730
  Transmission Date: 20241016
  Serious: Yes (Hospitalization, Disabling)
  Sender: Public
  Company Number: None

PATIENT
  Age: 32 Year
  Sex: Male
  Weight: 83.7 kg

DRUGS (3)
  1. METFORMIN HYDROCHLORIDE [Suspect]
     Active Substance: METFORMIN HYDROCHLORIDE
     Indication: Obesity
     Dosage: 1 TABLET TWICE A DAY ORAL
     Route: 048
     Dates: start: 20240517, end: 20240729
  2. RISPERDAL CONSTA [Concomitant]
     Active Substance: RISPERIDONE
  3. DEPAKOTE [Concomitant]
     Active Substance: DIVALPROEX SODIUM

REACTIONS (1)
  - Haematochezia [None]

NARRATIVE: CASE EVENT DATE: 20240725
